FAERS Safety Report 4497883-6 (Version None)
Quarter: 2004Q4

REPORT INFORMATION
  Report Type: 
  Country: None (occurrence: None)
  Receive Date: 20041104
  Receipt Date: 20041022
  Transmission Date: 20050328
  Serious: Yes (Hospitalization, Other)
  Sender: FDA-Public Use
  Company Number: 2004237205JP

PATIENT
  Age: 65 Year
  Sex: Female

DRUGS (4)
  1. CYCLOPHOSPHAMIDE [Suspect]
     Indication: BREAST CANCER
  2. FLUOROURACIL [Suspect]
     Indication: BREAST CANCER
  3. HYSRON-H200        (MEDROXYPROGESTERONE ACETATE) [Suspect]
     Indication: BREAST CANCER
  4. PIRARUBICIN [Suspect]
     Indication: BREAST CANCER

REACTIONS (6)
  - ACUTE MYELOID LEUKAEMIA [None]
  - BREAST CANCER [None]
  - MALIGNANT NEOPLASM PROGRESSION [None]
  - METASTASES TO BONE MARROW [None]
  - METASTASES TO LYMPH NODES [None]
  - PNEUMONIA [None]
